FAERS Safety Report 12948234 (Version 2)
Quarter: 2016Q4

REPORT INFORMATION
  Report Type: Spontaneous
  Country: US (occurrence: US)
  Receive Date: 20161116
  Receipt Date: 20161128
  Transmission Date: 20170207
  Serious: No
  Sender: FDA-Public Use
  Company Number: US-ASTRAZENECA-2016SF18415

PATIENT
  Sex: Male
  Weight: 63.5 kg

DRUGS (2)
  1. PULMICORT FLEXHALER [Suspect]
     Active Substance: BUDESONIDE
     Indication: ASTHMA
     Dosage: 180 UG 2 TO 4 PUFFS TWICE A DAY
     Route: 055
     Dates: end: 20161107
  2. PULMICORT FLEXHALER [Suspect]
     Active Substance: BUDESONIDE
     Indication: ASTHMA
     Route: 055

REACTIONS (9)
  - Off label use [Unknown]
  - Intentional product misuse [Unknown]
  - Product use issue [Unknown]
  - Drug ineffective [Unknown]
  - Device issue [Unknown]
  - Upper respiratory tract infection [Unknown]
  - Wheezing [Unknown]
  - Asthma [Unknown]
  - Drug dose omission [Unknown]
